FAERS Safety Report 25217483 (Version 1)
Quarter: 2025Q2

REPORT INFORMATION
  Report Type: Spontaneous
  Country: US (occurrence: US)
  Receive Date: 20250420
  Receipt Date: 20250420
  Transmission Date: 20250716
  Serious: No
  Sender: SANOFI AVENTIS
  Company Number: US-SA-2025SA113279

PATIENT
  Age: 91 Year
  Sex: Female

DRUGS (1)
  1. DUPIXENT [Suspect]
     Active Substance: DUPILUMAB
     Indication: Chronic obstructive pulmonary disease
     Route: 058
     Dates: start: 20250416, end: 20250416

REACTIONS (2)
  - Cough [Unknown]
  - Increased viscosity of upper respiratory secretion [Unknown]

NARRATIVE: CASE EVENT DATE: 20250417
